FAERS Safety Report 7422891-2 (Version None)
Quarter: 2011Q2

REPORT INFORMATION
  Report Type: 
  Country: None (occurrence: None)
  Receive Date: 20110419
  Receipt Date: 20110408
  Transmission Date: 20111010
  Serious: No
  Sender: FDA-Public Use
  Company Number: ES-JNJFOC-20110309626

PATIENT

DRUGS (3)
  1. ETRAVIRINE [Suspect]
     Indication: HIV INFECTION
     Route: 048
  2. RITONAVIR [Suspect]
     Indication: HIV INFECTION
     Route: 048
  3. DARUNAVIR [Suspect]
     Indication: HIV INFECTION
     Route: 048

REACTIONS (1)
  - TOXICITY TO VARIOUS AGENTS [None]
